FAERS Safety Report 26197232 (Version 2)
Quarter: 2025Q4

REPORT INFORMATION
  Report Type: Report from Study
  Country: CA (occurrence: CA)
  Receive Date: 20251224
  Receipt Date: 20251224
  Transmission Date: 20260117
  Serious: Yes (Death, Other)
  Sender: ALEXION PHARMACEUTICALS
  Company Number: CA-AstraZeneca-CH-01005982A

PATIENT
  Sex: Female

DRUGS (3)
  1. TEZEPELUMAB [Suspect]
     Active Substance: TEZEPELUMAB
     Indication: Asthma
     Dosage: 210 MILLIGRAM
  2. TEZEPELUMAB [Suspect]
     Active Substance: TEZEPELUMAB
  3. ZENHALE [Concomitant]
     Active Substance: FORMOTEROL FUMARATE\MOMETASONE FUROATE
     Route: 065

REACTIONS (8)
  - Malaise [Unknown]
  - Illness [Unknown]
  - Abdominal pain [Unknown]
  - Asthenia [Unknown]
  - Jaundice [Unknown]
  - Weight decreased [Unknown]
  - Colorectal cancer metastatic [Fatal]
  - Intestinal perforation [Fatal]
